FAERS Safety Report 20843392 (Version 1)
Quarter: 2022Q2

REPORT INFORMATION
  Report Type: Spontaneous
  Country: GB (occurrence: GB)
  Receive Date: 20220518
  Receipt Date: 20220518
  Transmission Date: 20220720
  Serious: Yes (Hospitalization)
  Sender: FDA-Public Use
  Company Number: GB-MYLANLABS-2022M1036508

PATIENT
  Age: 24 Year
  Sex: Female

DRUGS (19)
  1. AZATHIOPRINE [Suspect]
     Active Substance: AZATHIOPRINE
     Indication: Proteinuria
     Dosage: UNK
     Route: 065
  2. BISOPROLOL [Suspect]
     Active Substance: BISOPROLOL
     Indication: Palpitations
     Dosage: UNK
     Route: 065
  3. BISOPROLOL [Suspect]
     Active Substance: BISOPROLOL
     Dosage: BISOPROLOL DOSE WAS INCREASED TO 5MG ONCE DAILY
     Route: 065
  4. HYDROCORTISONE [Suspect]
     Active Substance: HYDROCORTISONE
     Indication: Postoperative care
     Dosage: UNK
     Route: 065
  5. HYDROCORTISONE [Suspect]
     Active Substance: HYDROCORTISONE
     Indication: Drug therapy
  6. RAMIPRIL [Suspect]
     Active Substance: RAMIPRIL
     Indication: Blood pressure management
     Dosage: UNK
     Route: 065
  7. PREDNISOLONE [Suspect]
     Active Substance: PREDNISOLONE
     Indication: Proteinuria
     Dosage: UNK
     Route: 065
  8. PREDNISOLONE [Suspect]
     Active Substance: PREDNISOLONE
     Indication: Lupus nephritis
     Dosage: RESTARTED PREDNISOLONE AT A DOSE OF 10MG DAILY
     Route: 065
  9. PREDNISOLONE [Suspect]
     Active Substance: PREDNISOLONE
     Dosage: PREDNISOLONE DOSE WAS INCREASED
     Route: 065
  10. ASPIRIN [Suspect]
     Active Substance: ASPIRIN
     Indication: Thrombosis prophylaxis
     Dosage: UNK
     Route: 065
  11. METHYLPREDNISOLONE [Suspect]
     Active Substance: METHYLPREDNISOLONE
     Indication: Lupus nephritis
     Dosage: UNK
     Route: 042
  12. IRON [Suspect]
     Active Substance: IRON
     Indication: Product used for unknown indication
     Route: 042
  13. NIFEDIPINE [Suspect]
     Active Substance: NIFEDIPINE
     Indication: Blood pressure management
     Dosage: 20 MILLIGRAM, BID
     Route: 065
  14. NIFEDIPINE [Suspect]
     Active Substance: NIFEDIPINE
     Dosage: 40 MILLIGRAM, BID
     Route: 065
  15. FUROSEMIDE [Suspect]
     Active Substance: FUROSEMIDE
     Indication: Blood pressure management
     Dosage: THEPATIENT RECEIVED FUROSEMIDE 20MG ALTERNATE DAYS
     Route: 065
  16. METHYLDOPA [Suspect]
     Active Substance: METHYLDOPA
     Indication: Blood pressure management
     Dosage: UNK
     Route: 065
  17. MAGNESIUM SULFATE [Suspect]
     Active Substance: MAGNESIUM SULFATE
     Indication: Eclampsia
     Dosage: UNK
     Route: 065
  18. MAGNESIUM SULFATE [Suspect]
     Active Substance: MAGNESIUM SULFATE
     Indication: Prophylaxis
  19. MAGNESIUM SULFATE [Suspect]
     Active Substance: MAGNESIUM SULFATE
     Indication: Nervous system disorder prophylaxis

REACTIONS (3)
  - Drug ineffective [Unknown]
  - Off label use [Unknown]
  - Maternal exposure during pregnancy [Recovered/Resolved]
